FAERS Safety Report 9223108 (Version 4)
Quarter: 2013Q3

REPORT INFORMATION
  Report Type: Report from Study
  Country: US (occurrence: US)
  Receive Date: 20130410
  Receipt Date: 20130701
  Transmission Date: 20140515
  Serious: Yes (Hospitalization, Other)
  Sender: FDA-Public Use
  Company Number: PHEH2013US007909

PATIENT
  Sex: Female

DRUGS (10)
  1. GILENYA [Suspect]
     Indication: MULTIPLE SCLEROSIS
     Dosage: 0.5 MG, QD
     Route: 048
     Dates: start: 20120424
  2. CLOPIDOGREL [Concomitant]
     Dosage: 75 MG, QD
     Route: 048
  3. COMBIVENT [Concomitant]
  4. CYMBALTA [Concomitant]
     Dosage: 60 MG, QD
     Route: 048
  5. FLUTICASONE [Concomitant]
     Dosage: UNK
  6. LIPITOR [Concomitant]
     Dosage: 40 MG, QD
     Route: 048
  7. LYRICA [Concomitant]
     Dosage: 1 DF, TID
     Route: 048
  8. NEVANAC [Concomitant]
  9. VITAMIN D3 [Concomitant]
     Dosage: 1 DF, QW
  10. ZALEPLON [Concomitant]

REACTIONS (11)
  - Brain stem haemorrhage [Recovered/Resolved]
  - Hemiparesis [Recovering/Resolving]
  - Balance disorder [Recovering/Resolving]
  - Sleep apnoea syndrome [Recovering/Resolving]
  - Restless legs syndrome [Recovering/Resolving]
  - Amnesia [Recovering/Resolving]
  - Neuropathy peripheral [Recovering/Resolving]
  - Gastrooesophageal reflux disease [Recovering/Resolving]
  - Hypokalaemia [Recovering/Resolving]
  - Back pain [Recovering/Resolving]
  - Depression [Recovering/Resolving]
